FAERS Safety Report 11525852 (Version 1)
Quarter: 2015Q3

REPORT INFORMATION
  Report Type: Spontaneous
  Country: US (occurrence: US)
  Receive Date: 20150918
  Receipt Date: 20150918
  Transmission Date: 20151125
  Serious: Yes (Other)
  Sender: FDA-Public Use
  Company Number: US-TAKEDA-TPA2012A04035

PATIENT

DRUGS (10)
  1. AVANDIA [Concomitant]
     Active Substance: ROSIGLITAZONE MALEATE
     Dates: start: 2003, end: 2005
  2. AVANDIA [Concomitant]
     Active Substance: ROSIGLITAZONE MALEATE
  3. SYMLIN [Concomitant]
     Active Substance: PRAMLINTIDE ACETATE
     Dates: start: 201212
  4. BYETTA [Concomitant]
     Active Substance: EXENATIDE
     Dates: start: 2009, end: 2011
  5. METFORMIN [Concomitant]
     Active Substance: METFORMIN HYDROCHLORIDE
     Dates: start: 2003, end: 2011
  6. AMARYL [Concomitant]
     Active Substance: GLIMEPIRIDE
     Dates: start: 2009, end: 2012
  7. ACTOS [Suspect]
     Active Substance: PIOGLITAZONE HYDROCHLORIDE
     Indication: TYPE 2 DIABETES MELLITUS
     Dates: start: 2007, end: 2011
  8. GLUCOPHAGE [Concomitant]
     Active Substance: METFORMIN HYDROCHLORIDE
  9. LEVEMIR [Concomitant]
     Active Substance: INSULIN DETEMIR
  10. MICRONASE [Concomitant]
     Active Substance: GLYBURIDE

REACTIONS (1)
  - Bladder cancer [Unknown]

NARRATIVE: CASE EVENT DATE: 200910
